FAERS Safety Report 11965613 (Version 2)
Quarter: 2016Q2

REPORT INFORMATION
  Report Type: Spontaneous
  Country: US (occurrence: US)
  Receive Date: 20160127
  Receipt Date: 20160415
  Transmission Date: 20160815
  Serious: Yes (Hospitalization, Disabling)
  Sender: FDA-Public Use
  Company Number: US-ENDO PHARMACEUTICALS INC.-2016-000523

PATIENT
  Age: 75 Year
  Sex: Male
  Weight: 116.22 kg

DRUGS (7)
  1. VIAGRA [Concomitant]
     Active Substance: SILDENAFIL CITRATE
     Indication: PRODUCT USED FOR UNKNOWN INDICATION
     Route: 065
  2. TESTIM [Suspect]
     Active Substance: TESTOSTERONE
     Indication: ANDROGEN REPLACEMENT THERAPY
     Dosage: DID NOT USE EVERY DAY
     Route: 062
     Dates: start: 20110325, end: 201304
  3. ANDROGEL [Suspect]
     Active Substance: TESTOSTERONE
     Indication: ANDROGEN REPLACEMENT THERAPY
     Route: 065
     Dates: start: 20100804, end: 201103
  4. ANDROGEL [Suspect]
     Active Substance: TESTOSTERONE
     Route: 065
     Dates: start: 20130404, end: 20131130
  5. KLOR-CON [Concomitant]
     Active Substance: POTASSIUM CHLORIDE
     Indication: PRODUCT USED FOR UNKNOWN INDICATION
     Route: 065
     Dates: start: 2010
  6. VITAMIN B [Concomitant]
     Active Substance: VITAMIN B
     Indication: NERVE INJURY
     Route: 065
     Dates: start: 1998
  7. GLIMEPIRIDE. [Concomitant]
     Active Substance: GLIMEPIRIDE
     Indication: TYPE 2 DIABETES MELLITUS
     Route: 065
     Dates: start: 2010

REACTIONS (8)
  - Headache [Unknown]
  - Dizziness [Unknown]
  - Respiratory failure [Unknown]
  - Pneumonia klebsiella [Recovered/Resolved]
  - Hallucination [Unknown]
  - Acute myocardial infarction [Not Recovered/Not Resolved]
  - Coronary artery disease [Not Recovered/Not Resolved]
  - Nausea [Unknown]

NARRATIVE: CASE EVENT DATE: 20120906
